FAERS Safety Report 7833598-1 (Version None)
Quarter: 2011Q4

REPORT INFORMATION
  Report Type: 
  Country: None (occurrence: None)
  Receive Date: 20111024
  Receipt Date: 20111017
  Transmission Date: 20120403
  Serious: Yes (Death, Hospitalization)
  Sender: FDA-Public Use
  Company Number: DE-BRISTOL-MYERS SQUIBB COMPANY-16020018

PATIENT
  Age: 59 Year
  Sex: Female
  Weight: 52 kg

DRUGS (9)
  1. ARIXTRA [Concomitant]
     Indication: VENOUS THROMBOSIS
     Dosage: STOPPED ON 09SEP11; RESTARTED AT 2.5 MG ON 13-SEP-2011
     Route: 058
     Dates: start: 20110720, end: 20110926
  2. LACTOBACILLUS [Concomitant]
     Indication: DIARRHOEA
     Dosage: 1 DF= 120 TROPFEN
     Route: 048
     Dates: start: 20110901, end: 20110926
  3. IPILIMUMAB [Suspect]
     Indication: MALIGNANT MELANOMA
     Dosage: INTERRUPTED:10AUG11. ALSO TOOK 162MG 02-02SEP11.
     Route: 042
     Dates: start: 20110719, end: 20110902
  4. PREDNISOLONE [Suspect]
     Indication: DIARRHOEA
     Dosage: 14SEP-26SEP-150MG,60 MG 26SEP11 TO 29SEP11 150 MG IV 30SEP11 TO 11OCT11, 7.5MG 20JU-9SEP11,
     Route: 048
     Dates: start: 20110914, end: 20111011
  5. FRAGMIN [Suspect]
     Route: 058
     Dates: start: 20110909, end: 20110927
  6. ZOPICLON [Concomitant]
     Dates: start: 20110719
  7. PANTOPRAZOLE SODIUM [Concomitant]
     Indication: PROPHYLAXIS
     Route: 048
  8. MESALAMINE [Concomitant]
     Indication: DIARRHOEA
     Dosage: 500MG 19SEP-11OCT11.
     Dates: start: 20110919, end: 20111011
  9. ASPIRIN [Suspect]
     Indication: PERIPHERAL ARTERIAL OCCLUSIVE DISEASE
     Route: 048
     Dates: start: 19960701, end: 20111006

REACTIONS (7)
  - RESPIRATORY FAILURE [None]
  - CEREBRAL HAEMORRHAGE [None]
  - PANCYTOPENIA [None]
  - DIARRHOEA [None]
  - NEOPLASM MALIGNANT [None]
  - VASCULAR OCCLUSION [None]
  - COLITIS [None]
